FAERS Safety Report 8216737-2 (Version None)
Quarter: 2012Q1

REPORT INFORMATION
  Report Type: 
  Country: None (occurrence: None)
  Receive Date: 20120316
  Receipt Date: 20120314
  Transmission Date: 20120608
  Serious: Yes (Hospitalization)
  Sender: FDA-Public Use
  Company Number: PL-ROCHE-1041227

PATIENT
  Sex: Male
  Weight: 93.3 kg

DRUGS (22)
  1. FUROSEMIDE [Concomitant]
     Dates: start: 20051123
  2. ALPHACALCIDOL [Concomitant]
     Dates: start: 20060422
  3. OMEPRAZOLE [Concomitant]
     Dates: start: 20070917
  4. ETAMSYLATE [Concomitant]
     Dates: start: 20080619
  5. MIRCERA [Suspect]
     Indication: NEPHROGENIC ANAEMIA
     Dosage: LAST DOSE PRIOR TO SAE 03/FEB/2012
     Route: 042
     Dates: start: 20111005
  6. ALLOPURINOL [Concomitant]
     Dates: start: 20051123
  7. ALUMINUM HYDROXIDE GEL [Concomitant]
     Dates: start: 20100203
  8. INSULIN ISOPHANE [Concomitant]
     Dosage: 46J DAILY
     Dates: start: 20051123
  9. ASPIRIN [Concomitant]
     Dates: start: 20060522
  10. METOPROLOL SUCCINATE [Concomitant]
     Dates: start: 20100514
  11. FOLIC ACID [Concomitant]
     Dates: start: 20110114
  12. MAGNESIUM/POTASSIUM [Concomitant]
     Dates: start: 20100712
  13. CINACALCET HYDROCHLORIDE [Concomitant]
     Dates: start: 20111017
  14. INSULIN HUMAN [Concomitant]
     Dates: start: 20051023
  15. CYANOCOBALAMIN [Concomitant]
     Dates: start: 20100203
  16. CALCIUM CARBONATE [Concomitant]
     Dates: start: 20070917
  17. DIOSMINE [Concomitant]
     Dates: start: 20100322
  18. DROTAVERINE [Concomitant]
     Dates: start: 20100816
  19. DIMETICON [Concomitant]
     Dates: start: 20100816
  20. SIMVASTATIN [Concomitant]
     Dates: start: 20051123
  21. TAMSULOSIN HCL [Concomitant]
     Dates: start: 20100212
  22. ACETYLCYSTEINE [Concomitant]
     Dates: start: 20100521

REACTIONS (2)
  - RECTAL CANCER [None]
  - LOWER GASTROINTESTINAL HAEMORRHAGE [None]
